FAERS Safety Report 8957337 (Version 1)
Quarter: 2012Q4

REPORT INFORMATION
  Report Type: 
  Country: AU (occurrence: AU)
  Receive Date: 20121210
  Receipt Date: 20121210
  Transmission Date: 20130627
  Serious: Yes (Hospitalization, Other)
  Sender: FDA-Public Use
  Company Number: AU-ALEXION PHARMACEUTICALS INC.-A201202308

PATIENT
  Sex: Male

DRUGS (4)
  1. SOLIRIS 300MG [Suspect]
     Indication: PAROXYSMAL NOCTURNAL HAEMOGLOBINURIA
     Dosage: 900 mg, UNK
     Route: 042
     Dates: start: 20120516
  2. PREDNISONE [Concomitant]
     Dosage: 5 mg, UNK
  3. PANTOPRAZOLE [Concomitant]
     Dosage: 40 mg, UNK
  4. AMLODIPINE [Concomitant]
     Dosage: 10 mg, UNK

REACTIONS (3)
  - Bursitis [Unknown]
  - Cellulitis [Recovering/Resolving]
  - Haemoglobin decreased [Unknown]
